FAERS Safety Report 6267810-X (Version None)
Quarter: 2009Q3

REPORT INFORMATION
  Report Type: 
  Country: None (occurrence: None)
  Receive Date: 20090714
  Receipt Date: 20090602
  Transmission Date: 20100115
  Serious: No
  Sender: FDA-Public Use
  Company Number: US-BAYER-200911720BCC

PATIENT
  Age: 85 Year
  Sex: Female
  Weight: 54 kg

DRUGS (5)
  1. ALEVE [Suspect]
     Indication: SPINAL COLUMN STENOSIS
     Dosage: TOOK ALEVE ^ON AND OFF^ INCREASING DAILY DOSE FROM 220 TO 660 MG
     Route: 048
     Dates: start: 20070101
  2. SIMVASTATIN [Concomitant]
     Indication: DRUG USE FOR UNKNOWN INDICATION
     Route: 065
  3. CARTIA XT [Concomitant]
     Indication: DRUG USE FOR UNKNOWN INDICATION
     Route: 065
  4. CENTRUM MULTIVATAMIN [Concomitant]
     Indication: DRUG USE FOR UNKNOWN INDICATION
     Route: 065
  5. BAYER OR OTHER BABY ASPIRIN [Concomitant]
     Indication: DRUG USE FOR UNKNOWN INDICATION
     Route: 065

REACTIONS (1)
  - SPINAL COLUMN STENOSIS [None]
